FAERS Safety Report 18794070 (Version 1)
Quarter: 2021Q1

REPORT INFORMATION
  Report Type: Spontaneous
  Country: JP (occurrence: JP)
  Receive Date: 20210127
  Receipt Date: 20210127
  Transmission Date: 20210419
  Serious: Yes (Other)
  Sender: FDA-Public Use
  Company Number: JP-PFIZER INC-2021048756

PATIENT

DRUGS (1)
  1. METHOTREXATE. [Suspect]
     Active Substance: METHOTREXATE
     Indication: OSTEOSARCOMA
     Dosage: 20640 MG
     Dates: start: 20210119, end: 20210120

REACTIONS (2)
  - Overdose [Unknown]
  - Drug level increased [Unknown]

NARRATIVE: CASE EVENT DATE: 20210120
